FAERS Safety Report 7912536-7 (Version None)
Quarter: 2011Q4

REPORT INFORMATION
  Report Type: 
  Country: None (occurrence: None)
  Receive Date: 20111114
  Receipt Date: 20111109
  Transmission Date: 20120403
  Serious: No
  Sender: FDA-Public Use
  Company Number: US-PFIZER INC-2011276131

PATIENT
  Sex: Female
  Weight: 73.5 kg

DRUGS (4)
  1. DIOVAN HCT [Concomitant]
     Indication: HYPERTENSION
     Dosage: 320/25, MG, DAILY
  2. METOPROLOL [Concomitant]
     Indication: HYPERTENSION
     Dosage: 25 MG, 2X/DAY
  3. LYRICA [Suspect]
     Indication: BACK PAIN
     Dosage: 50 MG, 2X/DAY
     Route: 048
     Dates: start: 20111109
  4. AMLODIPINE [Concomitant]
     Indication: HYPERTENSION
     Dosage: 10 MG, DAILY

REACTIONS (1)
  - HEADACHE [None]
